FAERS Safety Report 8881224 (Version 2)
Quarter: 2013Q2

REPORT INFORMATION
  Report Type: Spontaneous
  Country: US (occurrence: US)
  Receive Date: 20121031
  Receipt Date: 20130620
  Transmission Date: 20140414
  Serious: Yes (Other)
  Sender: FDA-Public Use
  Company Number: CHPA2012US022514

PATIENT
  Age: 34 Year
  Sex: Female

DRUGS (2)
  1. EXCEDRIN MIGRAINE [Suspect]
     Indication: MIGRAINE
     Dosage: 1 OR 2 DF DAILY
  2. EXCEDRIN MIGRAINE [Suspect]
     Dosage: 6 DF DAILY
     Route: 048
     Dates: start: 2003

REACTIONS (11)
  - Haematochezia [Recovered/Resolved]
  - Renal disorder [Recovered/Resolved]
  - Nausea [Recovered/Resolved]
  - Abdominal pain upper [Not Recovered/Not Resolved]
  - Vomiting [Recovered/Resolved]
  - Hiatus hernia [Recovered/Resolved]
  - Back pain [Recovered/Resolved]
  - Muscle tightness [Recovered/Resolved]
  - Disease recurrence [Recovered/Resolved]
  - Overdose [Unknown]
  - Underdose [Unknown]
